FAERS Safety Report 7313644-4 (Version None)
Quarter: 2011Q1

REPORT INFORMATION
  Report Type: 
  Country: None (occurrence: None)
  Receive Date: 20110225
  Receipt Date: 20110215
  Transmission Date: 20110831
  Serious: Yes (Hospitalization, Other)
  Sender: FDA-Public Use
  Company Number: US-PFIZER INC-2011002287

PATIENT
  Sex: Male

DRUGS (2)
  1. XALATAN [Suspect]
     Dosage: UNK
  2. LEVOBUNOLOL [Suspect]
     Dosage: UNK

REACTIONS (3)
  - HEART RATE DECREASED [None]
  - DRUG DISPENSING ERROR [None]
  - CARDIAC PACEMAKER INSERTION [None]
